FAERS Safety Report 22894914 (Version 2)
Quarter: 2024Q2

REPORT INFORMATION
  Report Type: Spontaneous
  Country: BR (occurrence: BR)
  Receive Date: 20230901
  Receipt Date: 20240422
  Transmission Date: 20240716
  Serious: Yes (Other)
  Sender: FDA-Public Use
  Company Number: BR-Harrow Eye-2145536

PATIENT
  Age: 61 Year
  Sex: Male
  Weight: 81 kg

DRUGS (2)
  1. VIGAMOX [Suspect]
     Active Substance: MOXIFLOXACIN HYDROCHLORIDE
     Indication: Eye inflammation
     Route: 047
     Dates: start: 20230704, end: 20230706
  2. CYLOCORT [Concomitant]
     Dates: start: 20230706

REACTIONS (4)
  - Eye irritation [Recovering/Resolving]
  - Off label use [Unknown]
  - Drug ineffective [Unknown]
  - Vision blurred [Recovering/Resolving]

NARRATIVE: CASE EVENT DATE: 20230704
